FAERS Safety Report 5124598-3 (Version None)
Quarter: 2006Q4

REPORT INFORMATION
  Report Type: 
  Country: None (occurrence: None)
  Receive Date: 20061011
  Receipt Date: 20061003
  Transmission Date: 20070319
  Serious: Yes (Life-Threatening)
  Sender: FDA-Public Use
  Company Number: GB-JNJFOC-20050405095

PATIENT
  Age: 47 Year
  Sex: Male

DRUGS (12)
  1. SUBLIMAZE PRESERVATIVE FREE [Suspect]
     Indication: DRUG USE FOR UNKNOWN INDICATION
     Route: 042
  2. FENTANYL [Suspect]
     Indication: DRUG USE FOR UNKNOWN INDICATION
     Route: 062
  3. HALOPERIDOL [Interacting]
     Indication: DRUG USE FOR UNKNOWN INDICATION
     Route: 065
  4. ZYVOX [Interacting]
     Indication: STAPHYLOCOCCAL INFECTION
     Route: 042
  5. PROCYCLIDINE HYDROCHLORIDE 2MG TAB [Interacting]
     Indication: DRUG USE FOR UNKNOWN INDICATION
     Route: 048
  6. ATENOLOL [Interacting]
     Indication: DRUG USE FOR UNKNOWN INDICATION
     Route: 048
  7. RIFAMPICIN [Interacting]
     Indication: DRUG USE FOR UNKNOWN INDICATION
     Route: 042
  8. AMISULPRIDE [Interacting]
     Indication: DRUG USE FOR UNKNOWN INDICATION
     Route: 048
  9. OMEPRAZOLE [Interacting]
     Indication: DRUG USE FOR UNKNOWN INDICATION
     Route: 065
  10. PANTOPRAZOLE SODIUM [Interacting]
     Indication: DRUG USE FOR UNKNOWN INDICATION
     Route: 065
  11. ZOPICLONE [Interacting]
     Indication: DRUG USE FOR UNKNOWN INDICATION
     Route: 065
  12. DOXAZOSIN [Interacting]
     Indication: DRUG USE FOR UNKNOWN INDICATION
     Route: 048

REACTIONS (2)
  - DRUG INTERACTION [None]
  - HYPERTENSION [None]
